FAERS Safety Report 7030556-4 (Version None)
Quarter: 2010Q4

REPORT INFORMATION
  Report Type: 
  Country: None (occurrence: None)
  Receive Date: 20101006
  Receipt Date: 20100923
  Transmission Date: 20110411
  Serious: Yes (Life-Threatening, Hospitalization, Disabling)
  Sender: FDA-Public Use
  Company Number: DE-ROCHE-726835

PATIENT
  Sex: Male
  Weight: 70 kg

DRUGS (3)
  1. XELODA [Suspect]
     Dosage: FIRST CYCLE OF THERAPY ACCORDING TO XELOX REGIMEN
     Route: 048
     Dates: start: 20100818, end: 20100902
  2. OXALIPLATIN [Concomitant]
     Dosage: FIRST CYCLE OF THERAPY ACCORDING TO XELOX REGIMEN
     Route: 042
     Dates: start: 20100818, end: 20100818
  3. PANTOPRAZOLE [Concomitant]
     Route: 048
     Dates: start: 20100818

REACTIONS (1)
  - CEREBRAL HAEMORRHAGE [None]
